FAERS Safety Report 10149306 (Version 1)
Quarter: 2014Q2

REPORT INFORMATION
  Report Type: Spontaneous
  Country: US (occurrence: None)
  Receive Date: 20140501
  Receipt Date: 20140501
  Transmission Date: 20141212
  Serious: Yes (Hospitalization)
  Sender: FDA-Public Use
  Company Number: None

PATIENT
  Age: 25 Year
  Sex: Female

DRUGS (17)
  1. VANCOMYCIN [Suspect]
     Indication: INFECTION
     Route: 042
     Dates: start: 20130425, end: 20130528
  2. ADDERALL [Concomitant]
  3. TERRACYCLINE [Concomitant]
  4. CALCIUM + VITAMIN D [Concomitant]
  5. DIAZEPAM [Concomitant]
  6. INSULIN LISPRO [Concomitant]
  7. HYDROMORPHONE [Concomitant]
  8. IRON [Concomitant]
  9. ESCITALOPRAM [Concomitant]
  10. MULTIVITAMIN [Concomitant]
  11. INSULIN ASPART [Concomitant]
  12. OXYMORPHONE [Concomitant]
  13. PANTOPRAZOLE [Concomitant]
  14. VITAMIN C [Concomitant]
  15. DOCUSATE [Concomitant]
  16. ONDANSETRON [Concomitant]
  17. VITAMIN A [Concomitant]

REACTIONS (1)
  - Renal failure acute [None]
